FAERS Safety Report 6033861-3 (Version None)
Quarter: 2009Q1

REPORT INFORMATION
  Report Type: 
  Country: None (occurrence: None)
  Receive Date: 20090112
  Receipt Date: 20081216
  Transmission Date: 20090719
  Serious: Yes (Other)
  Sender: FDA-Public Use
  Company Number: US-PURDUE-USA_2008_0036293

PATIENT
  Sex: Male

DRUGS (2)
  1. OXYCONTIN [Suspect]
     Indication: PAIN
     Dosage: 10 MG, UNK
     Route: 048
     Dates: start: 20000614
  2. OXYCONTIN [Suspect]
     Dosage: 20 MG, UNK
     Route: 048
     Dates: start: 20000814

REACTIONS (8)
  - ANXIETY [None]
  - CHILLS [None]
  - DYSPNOEA [None]
  - HYPERHIDROSIS [None]
  - PRURITUS [None]
  - SOMNOLENCE [None]
  - SUICIDAL IDEATION [None]
  - WEIGHT DECREASED [None]
